FAERS Safety Report 24403754 (Version 1)
Quarter: 2024Q4

REPORT INFORMATION
  Report Type: Spontaneous
  Country: CN (occurrence: CN)
  Receive Date: 20241007
  Receipt Date: 20241007
  Transmission Date: 20250114
  Serious: No
  Sender: ROCHE
  Company Number: CN-ROCHE-3392335

PATIENT
  Age: 63 Year
  Sex: Female

DRUGS (3)
  1. OBINUTUZUMAB [Suspect]
     Active Substance: OBINUTUZUMAB
     Indication: Chronic lymphocytic leukaemia
     Dosage: C1, D1-8-15, C2-C6, 29/JAN/2023, 03/MAR/2023, 03/APR/2023, 08/MAY/2023, 08/JUN/2023
     Route: 065
     Dates: start: 20221117
  2. LENALIDOMIDE [Concomitant]
     Active Substance: LENALIDOMIDE
     Indication: Chronic lymphocytic leukaemia
     Dosage: C1, D1-8-15, C2-C6, 29/JAN/2023, 03/MAR/2023, 03/APR/2023, 08/MAY/2023, 08/JUN/2023
     Route: 065
     Dates: start: 20221117
  3. ZANUBRUTINIB [Concomitant]
     Active Substance: ZANUBRUTINIB
     Indication: Chronic lymphocytic leukaemia
     Dosage: C1, D1-8-15,C2-C6,29/JAN/2023, 03/MAR/2023, 03/APR/2023, 08/MAY/2023, 08/JUN/2023
     Route: 065
     Dates: start: 20221117

REACTIONS (2)
  - Off label use [Unknown]
  - No adverse event [Unknown]
